FAERS Safety Report 7061202-1 (Version None)
Quarter: 2010Q4

REPORT INFORMATION
  Report Type: 
  Country: None (occurrence: None)
  Receive Date: 20101026
  Receipt Date: 20101015
  Transmission Date: 20110411
  Serious: Yes (Hospitalization)
  Sender: FDA-Public Use
  Company Number: JP-BAYER-201014774BYL

PATIENT
  Age: 41 Year
  Sex: Male
  Weight: 52 kg

DRUGS (6)
  1. CIPROFLOXACIN HCL [Suspect]
     Indication: FEBRILE NEUTROPENIA
     Dosage: TOTAL DAILY DOSE: 600 MG  UNIT DOSE: 300 MG
     Route: 042
     Dates: start: 20070321, end: 20070328
  2. SOLDEM 3A [Concomitant]
     Indication: PROPHYLAXIS AGAINST DEHYDRATION
     Route: 042
     Dates: start: 20070321, end: 20070323
  3. BAKTAR [Concomitant]
     Indication: INFECTION PROPHYLAXIS
     Route: 048
     Dates: start: 20070213, end: 20070327
  4. THERARUBICIN [Concomitant]
     Indication: ACUTE LYMPHOCYTIC LEUKAEMIA
     Route: 042
     Dates: start: 20070315, end: 20070318
  5. NIDRAN [Concomitant]
     Indication: ACUTE LYMPHOCYTIC LEUKAEMIA
     Route: 042
     Dates: start: 20070315, end: 20070318
  6. VEPESID [Concomitant]
     Indication: ACUTE LYMPHOCYTIC LEUKAEMIA
     Route: 042
     Dates: start: 20070315, end: 20070318

REACTIONS (1)
  - DECREASED APPETITE [None]
